FAERS Safety Report 6839003-6 (Version None)
Quarter: 2010Q3

REPORT INFORMATION
  Report Type: 
  Country: None (occurrence: None)
  Receive Date: 20100713
  Receipt Date: 20090413
  Transmission Date: 20110219
  Serious: No
  Sender: FDA-Public Use
  Company Number: US-PFIZER INC-2007040440

PATIENT
  Sex: Female
  Weight: 50.8 kg

DRUGS (4)
  1. CHANTIX [Suspect]
     Indication: SMOKING CESSATION THERAPY
     Route: 048
     Dates: start: 20070314
  2. ATENOLOL [Concomitant]
     Indication: HYPERTENSION
  3. PROPACET 100 [Concomitant]
  4. ALPRAZOLAM [Concomitant]
     Indication: ANXIETY

REACTIONS (1)
  - ANXIETY [None]
